FAERS Safety Report 9287855 (Version 1)
Quarter: 2013Q2

REPORT INFORMATION
  Report Type: Spontaneous
  Country: US (occurrence: None)
  Receive Date: 20130513
  Receipt Date: 20130513
  Transmission Date: 20140414
  Serious: Yes (Death, Hospitalization)
  Sender: FDA-Public Use
  Company Number: None

PATIENT
  Age: 66 Year
  Sex: Female
  Weight: 134.5 kg

DRUGS (8)
  1. CISPLATIN [Suspect]
  2. ALLOPURINOL [Concomitant]
  3. ENALAPRIL [Concomitant]
  4. INSULIN [Concomitant]
  5. LASIX PRN [Concomitant]
  6. NAPROXEN [Concomitant]
  7. POTASSIUM SUPPLEMENT [Concomitant]
  8. HYDROCHLOROTHIAZIDE [Concomitant]

REACTIONS (15)
  - Renal failure acute [None]
  - Cardiac failure [None]
  - Hypophagia [None]
  - Arthritis bacterial [None]
  - Staphylococcal bacteraemia [None]
  - Endocarditis [None]
  - Calciphylaxis [None]
  - Skin necrosis [None]
  - Hypotension [None]
  - Generalised oedema [None]
  - Eschar [None]
  - Enterococcal infection [None]
  - Urinary tract infection enterococcal [None]
  - Haemodialysis [None]
  - Renal failure chronic [None]
